FAERS Safety Report 6803896-9 (Version None)
Quarter: 2010Q2

REPORT INFORMATION
  Report Type: 
  Country: None (occurrence: None)
  Receive Date: 20100628
  Receipt Date: 20100616
  Transmission Date: 20101027
  Serious: Yes (Other)
  Sender: FDA-Public Use
  Company Number: GB-PFIZER INC-2010075140

PATIENT
  Age: 35 Year
  Sex: Male
  Weight: 98 kg

DRUGS (2)
  1. CHAMPIX [Suspect]
     Dosage: 1 MG, 2X/DAY
     Route: 048
     Dates: start: 20100428, end: 20100604
  2. TEGRETOL [Concomitant]
     Indication: EPILEPSY
     Dosage: 200 MG, UNK
     Route: 048

REACTIONS (1)
  - EPILEPSY [None]
